FAERS Safety Report 17029719 (Version 2)
Quarter: 2021Q4

REPORT INFORMATION
  Report Type: Spontaneous
  Country: US (occurrence: US)
  Receive Date: 20191114
  Receipt Date: 20211123
  Transmission Date: 20220303
  Serious: Yes (Hospitalization, Other)
  Sender: FDA-Public Use
  Company Number: US-SUN PHARMACEUTICAL INDUSTRIES LTD-2019R1-226429

PATIENT
  Age: 47 Year
  Sex: Female

DRUGS (4)
  1. DULOXETINE [Interacting]
     Active Substance: DULOXETINE
     Indication: Depression
     Dosage: UNK
     Route: 065
  2. METHYLENE BLUE [Interacting]
     Active Substance: METHYLENE BLUE
     Indication: Intraoperative care
     Dosage: UNK
     Route: 042
  3. PANTOPRAZOLE [Interacting]
     Active Substance: PANTOPRAZOLE
     Indication: Obstruction gastric
     Dosage: UNK
     Route: 065
  4. ALPRAZOLAM [Interacting]
     Active Substance: ALPRAZOLAM
     Indication: Product used for unknown indication
     Dosage: UNK
     Route: 065

REACTIONS (5)
  - Serotonin syndrome [Unknown]
  - Agitation [Recovered/Resolved]
  - Myoclonus [Recovered/Resolved]
  - Opsoclonus myoclonus [Recovered/Resolved]
  - Drug interaction [Unknown]
